FAERS Safety Report 9354163 (Version 1)
Quarter: 2013Q2

REPORT INFORMATION
  Report Type: Spontaneous
  Country: TR (occurrence: TR)
  Receive Date: 20130618
  Receipt Date: 20130618
  Transmission Date: 20140414
  Serious: Yes (Other)
  Sender: FDA-Public Use
  Company Number: TR-ABBOTT-13X-161-1105428-00

PATIENT
  Age: 38 Year
  Sex: Male

DRUGS (2)
  1. VALPROIC ACID [Suspect]
     Indication: PRODUCT USED FOR UNKNOWN INDICATION
     Dosage: 2000 MILIGRAM (S) ; DAILY
     Dates: start: 2011, end: 2012
  2. RISPERIDONE [Concomitant]
     Indication: PRODUCT USED FOR UNKNOWN INDICATION

REACTIONS (3)
  - Pericardial effusion [Unknown]
  - Pleural effusion [Recovered/Resolved]
  - Dyspnoea [Unknown]
